FAERS Safety Report 14556239 (Version 2)
Quarter: 2018Q1

REPORT INFORMATION
  Report Type: Spontaneous
  Country: FR (occurrence: FR)
  Receive Date: 20180221
  Receipt Date: 20180316
  Transmission Date: 20180509
  Serious: Yes (Death, Hospitalization, Other)
  Sender: FDA-Public Use
  Company Number: FR-009507513-1802FRA009023

PATIENT
  Age: 64 Year
  Sex: Male

DRUGS (3)
  1. TAHOR [Concomitant]
     Active Substance: ATORVASTATIN CALCIUM
     Indication: HYPERCHOLESTEROLAEMIA
     Dosage: 20 MG, QD
  2. KEYTRUDA [Suspect]
     Active Substance: PEMBROLIZUMAB
     Indication: NON-SMALL CELL LUNG CANCER
     Dosage: ONE INFUSION
     Route: 042
     Dates: start: 20180111, end: 20180111
  3. TEMESTA (LORAZEPAM) [Concomitant]
     Active Substance: LORAZEPAM
     Indication: ANXIETY
     Dosage: 1 MG, QD

REACTIONS (1)
  - Autoimmune myocarditis [Fatal]

NARRATIVE: CASE EVENT DATE: 20180124
